FAERS Safety Report 6386551-1 (Version None)
Quarter: 2009Q4

REPORT INFORMATION
  Report Type: 
  Country: None (occurrence: None)
  Receive Date: 20091002
  Receipt Date: 20090421
  Transmission Date: 20100525
  Serious: Yes (Other)
  Sender: FDA-Public Use
  Company Number: US-ASTRAZENECA-2009UW10004

PATIENT
  Age: 800 Month
  Sex: Female
  Weight: 65.8 kg

DRUGS (4)
  1. ARIMIDEX [Suspect]
     Indication: BREAST CANCER
     Route: 048
     Dates: start: 20070101
  2. NORVASC [Concomitant]
  3. HYDROCHLOROTHIAZIDE [Concomitant]
  4. SIMVASTATIN [Concomitant]

REACTIONS (3)
  - OSTEOPENIA [None]
  - OSTEOPOROSIS [None]
  - SPINAL FRACTURE [None]
